FAERS Safety Report 5030923-4 (Version None)
Quarter: 2006Q2

REPORT INFORMATION
  Report Type: 
  Country: None (occurrence: None)
  Receive Date: 20060619
  Receipt Date: 20060612
  Transmission Date: 20061013
  Serious: Yes (Other)
  Sender: FDA-Public Use
  Company Number: DE-2006-013552

PATIENT
  Age: 53 Year
  Sex: Female

DRUGS (2)
  1. CAMPATH [Suspect]
     Dosage: 3/10/30 MG, INTRAVENOUS; 30 MG, INTRAVENOUS
     Route: 042
  2. CYCLOPHOSPHAMIDE [Concomitant]

REACTIONS (3)
  - CYTOMEGALOVIRUS INFECTION [None]
  - GRAFT VERSUS HOST DISEASE [None]
  - HERPES ZOSTER [None]
